FAERS Safety Report 5253346-1 (Version None)
Quarter: 2007Q1

REPORT INFORMATION
  Report Type: 
  Country: None (occurrence: None)
  Receive Date: 20061201
  Receipt Date: 20060829
  Transmission Date: 20070707
  Serious: No
  Sender: FDA-Public Use
  Company Number: 2006PV020329

PATIENT
  Age: 60 Year
  Sex: Male
  Weight: 105.6881 kg

DRUGS (3)
  1. BYETTA [Suspect]
     Indication: DIABETES MELLITUS NON-INSULIN-DEPENDENT
     Dosage: SEE IMAGE
     Route: 058
     Dates: start: 20060713, end: 20060812
  2. BYETTA [Suspect]
     Indication: DIABETES MELLITUS NON-INSULIN-DEPENDENT
     Dosage: SEE IMAGE
     Route: 058
     Dates: start: 20060813
  3. METFORMIN HCL [Suspect]
     Indication: DIABETES MELLITUS NON-INSULIN-DEPENDENT
     Dosage: 500 MG;BID;PO
     Route: 048
     Dates: start: 20030114

REACTIONS (5)
  - DECREASED APPETITE [None]
  - DYSPEPSIA [None]
  - NAUSEA [None]
  - VOMITING [None]
  - WEIGHT DECREASED [None]
